FAERS Safety Report 4379310-2 (Version None)
Quarter: 2004Q2

REPORT INFORMATION
  Report Type: 
  Country: None (occurrence: None)
  Receive Date: 20040617
  Receipt Date: 20040606
  Transmission Date: 20050107
  Serious: Yes (Other)
  Sender: FDA-Public Use
  Company Number: 200415843GDDC

PATIENT
  Age: 65 Year
  Sex: Male

DRUGS (1)
  1. CLEXANE [Suspect]
     Indication: DEEP VENOUS THROMBOSIS PROPHYLAXIS
     Route: 058
     Dates: start: 20040520, end: 20040605

REACTIONS (1)
  - PANCYTOPENIA [None]
